FAERS Safety Report 5404687-6 (Version None)
Quarter: 2007Q3

REPORT INFORMATION
  Report Type: 
  Country: None (occurrence: None)
  Receive Date: 20070731
  Receipt Date: 20070716
  Transmission Date: 20080115
  Serious: Yes (Hospitalization)
  Sender: FDA-Public Use
  Company Number: MEDI-0005867

PATIENT
  Age: 8 Month
  Sex: Male
  Weight: 7.5 kg

DRUGS (4)
  1. SYNAGIS [Suspect]
     Indication: ANTIVIRAL PROPHYLAXIS
     Dosage: 78 MG, 1 IN 1 M, INTRAMUSCULAR
     Route: 030
     Dates: start: 20070126, end: 20070126
  2. SYNAGIS [Suspect]
     Indication: ANTIVIRAL PROPHYLAXIS
     Dosage: 78 MG, 1 IN 1 M, INTRAMUSCULAR
     Route: 030
     Dates: start: 20070224
  3. SYNAGIS [Suspect]
  4. SYNAGIS [Suspect]

REACTIONS (1)
  - BRONCHIOLITIS [None]
